FAERS Safety Report 21395807 (Version 1)
Quarter: 2022Q3

REPORT INFORMATION
  Report Type: Report from Study
  Country: IN (occurrence: IN)
  Receive Date: 20220930
  Receipt Date: 20220930
  Transmission Date: 20221027
  Serious: Yes (Other)
  Sender: FDA-Public Use
  Company Number: IN-NOVARTISPH-NVSC2022IN220388

PATIENT
  Age: 35 Year
  Sex: Male
  Weight: 68 kg

DRUGS (4)
  1. SECUKINUMAB [Suspect]
     Active Substance: SECUKINUMAB
     Indication: Ankylosing spondylitis
     Dosage: 150 MG, ONCE IN 3 MONTHS
     Route: 058
  2. SECUKINUMAB [Suspect]
     Active Substance: SECUKINUMAB
     Dosage: 150 MG, QMO
     Route: 058
  3. INDOCAP [Concomitant]
     Indication: Product used for unknown indication
     Dosage: 75 MG, BID
     Route: 065
  4. INDOCAP [Concomitant]
     Dosage: UNK, QD (ONCE AFTER DINNER FOR 14 DAYS)
     Route: 065

REACTIONS (3)
  - Uveitis [Unknown]
  - Back pain [Unknown]
  - Product prescribing error [Unknown]
